FAERS Safety Report 17622825 (Version 1)
Quarter: 2020Q2

REPORT INFORMATION
  Report Type: Spontaneous
  Country: US (occurrence: US)
  Receive Date: 20200403
  Receipt Date: 20200403
  Transmission Date: 20200713
  Serious: No
  Sender: FDA-Public Use
  Company Number: US-PFIZER INC-2020135712

PATIENT
  Age: 84 Year
  Sex: Female
  Weight: 94 kg

DRUGS (2)
  1. LYRICA [Suspect]
     Active Substance: PREGABALIN
     Indication: POLYNEUROPATHY
     Dosage: 300 MG, DAILY (100MG 3 CAPSULES BY MOUTH DAILY)
     Route: 048
     Dates: start: 2018
  2. LYRICA [Suspect]
     Active Substance: PREGABALIN
     Indication: NEURALGIA

REACTIONS (5)
  - Eating disorder [Unknown]
  - Weight increased [Unknown]
  - Sensation of blood flow [Unknown]
  - Gait disturbance [Unknown]
  - Hypoaesthesia [Unknown]
